FAERS Safety Report 19051241 (Version 1)
Quarter: 2021Q1

REPORT INFORMATION
  Report Type: Spontaneous
  Country: US (occurrence: US)
  Receive Date: 20210323
  Receipt Date: 20210323
  Transmission Date: 20210420
  Serious: Yes (Other)
  Sender: FDA-Public Use
  Company Number: US-SUN PHARMACEUTICAL INDUSTRIES LTD-2021R1-286902

PATIENT
  Sex: Female

DRUGS (5)
  1. FENTANYL. [Suspect]
     Active Substance: FENTANYL
     Indication: EPIDURAL ANAESTHESIA
     Dosage: UNK, 2 MCG/ML
     Route: 064
  2. ADENOSINE. [Suspect]
     Active Substance: ADENOSINE
     Indication: SUPRAVENTRICULAR TACHYCARDIA
     Dosage: UNK,12 MILLIGRAM
     Route: 064
  3. 2?CHLOROPROCAINE [Suspect]
     Active Substance: CHLOROPROCAINE
     Indication: EPIDURAL ANAESTHESIA
     Dosage: UNK,10 MILLILITER
     Route: 064
  4. METOPROLOL. [Suspect]
     Active Substance: METOPROLOL
     Indication: SUPRAVENTRICULAR TACHYCARDIA
     Dosage: UNK
     Route: 064
  5. BUPIVACAINE. [Suspect]
     Active Substance: BUPIVACAINE
     Indication: EPIDURAL ANAESTHESIA
     Dosage: UNK,6 MILLILITER
     Route: 064

REACTIONS (2)
  - Foetal heart rate deceleration abnormality [Unknown]
  - Foetal exposure during pregnancy [Unknown]
